FAERS Safety Report 5392895-2 (Version None)
Quarter: 2007Q3

REPORT INFORMATION
  Report Type: 
  Country: None (occurrence: None)
  Receive Date: 20070721
  Receipt Date: 20070711
  Transmission Date: 20080115
  Serious: Yes (Other)
  Sender: FDA-Public Use
  Company Number: GB-PFIZER INC-2007058235

PATIENT
  Age: 60 Year
  Sex: Female

DRUGS (2)
  1. LYRICA [Suspect]
     Indication: TRIGEMINAL NEURALGIA
     Route: 048
  2. HMG COA REDUCTASE INHIBITORS [Concomitant]

REACTIONS (4)
  - DIARRHOEA [None]
  - HEPATITIS [None]
  - JAUNDICE [None]
  - STOMACH DISCOMFORT [None]
